FAERS Safety Report 5842527-1 (Version None)
Quarter: 2008Q3

REPORT INFORMATION
  Report Type: 
  Country: None (occurrence: None)
  Receive Date: 20080812
  Receipt Date: 20080801
  Transmission Date: 20090109
  Serious: Yes (Hospitalization, Other)
  Sender: FDA-Public Use
  Company Number: US-PFIZER INC-2008065118

PATIENT
  Age: 35 Year
  Sex: Female

DRUGS (4)
  1. SERTRALINE [Suspect]
     Indication: DEPRESSION
  2. VALPROIC ACID [Suspect]
     Indication: PSYCHOTIC DISORDER
  3. HALOPERIDOL [Suspect]
     Indication: PSYCHOTIC DISORDER
  4. LORAZEPAM [Suspect]
     Indication: PSYCHOTIC DISORDER

REACTIONS (4)
  - AGITATION [None]
  - HALLUCINATION, AUDITORY [None]
  - SUICIDAL IDEATION [None]
  - VIOLENCE-RELATED SYMPTOM [None]
